FAERS Safety Report 6188837-2 (Version None)
Quarter: 2009Q2

REPORT INFORMATION
  Report Type: 
  Country: None (occurrence: None)
  Receive Date: 20090513
  Receipt Date: 20090507
  Transmission Date: 20091009
  Serious: Yes (Life-Threatening, Hospitalization)
  Sender: FDA-Public Use
  Company Number: DE-TYCO HEALTHCARE/MALLINCKRODT-T200901000

PATIENT

DRUGS (1)
  1. SODIUM IODIDE I 131 [Suspect]
     Indication: SCINTIGRAPHY
     Dosage: DRUG EXPOSURE VIA MOTHER
     Route: 064
     Dates: start: 19970501, end: 19970501

REACTIONS (1)
  - CEREBELLAR TUMOUR [None]
